FAERS Safety Report 6721789-2 (Version None)
Quarter: 2010Q2

REPORT INFORMATION
  Report Type: 
  Country: None (occurrence: None)
  Receive Date: 20100512
  Receipt Date: 20100504
  Transmission Date: 20101027
  Serious: Yes (Death, Hospitalization)
  Sender: FDA-Public Use
  Company Number: DE-ROCHE-700027

PATIENT
  Sex: Male
  Weight: 95 kg

DRUGS (13)
  1. BEVACIZUMAB [Suspect]
     Indication: NON-SMALL CELL LUNG CANCER
     Dosage: FORM: INFUSION, LAST DOSE PRIOR TO SAE: 19 APRIL 2010
     Route: 042
     Dates: start: 20100419, end: 20100427
  2. PEMETREXED [Suspect]
     Indication: NON-SMALL CELL LUNG CANCER
     Dosage: FORM: INFUSION, LAST DOSE PRIOR TO SAE: 19 APR 2010
     Route: 042
     Dates: start: 20100419
  3. CARBOPLATIN [Suspect]
     Indication: NON-SMALL CELL LUNG CANCER
     Dosage: FORM: INFUSION, LAST DOSE PRIOR TO SAE: 19 APRIL 2010
     Route: 042
     Dates: start: 20100419
  4. NEUPOGEN 48 [Concomitant]
     Dates: start: 20100427
  5. ZIENAM [Concomitant]
     Dates: start: 20100426
  6. OMEP [Concomitant]
     Dates: start: 20100408
  7. FOLSAN [Concomitant]
     Dates: start: 20100408
  8. ASPIRIN [Concomitant]
     Dates: start: 20100418
  9. RAMIPRIL [Concomitant]
     Dates: start: 20100408
  10. OXAZEPAM [Concomitant]
     Dates: start: 20100410
  11. FURORESE [Concomitant]
     Dosage: TDD: 35 ST
     Dates: start: 20100420
  12. KALINOR BRAUSE [Concomitant]
     Dates: start: 20100418
  13. CODEINE SULFATE [Concomitant]
     Dosage: DRUG REPORTED AS PARACODEIN, TDD: 3 X 15 TR
     Dates: start: 20100416

REACTIONS (3)
  - CARDIAC FAILURE [None]
  - LARGE INTESTINAL HAEMORRHAGE [None]
  - PNEUMONIA [None]
